FAERS Safety Report 8361708-9 (Version None)
Quarter: 2012Q2

REPORT INFORMATION
  Report Type: 
  Country: None (occurrence: None)
  Receive Date: 20120514
  Receipt Date: 20120502
  Transmission Date: 20120825
  Serious: Yes (Disabling, Other)
  Sender: FDA-Public Use
  Company Number: AUR-APL-2012-02125

PATIENT
  Age: 52 Year
  Sex: Male
  Weight: 85.26 kg

DRUGS (8)
  1. LIPITOR [Suspect]
     Indication: BLOOD CHOLESTEROL ABNORMAL
     Dosage: (20 MG, 1 D), ORAL
     Route: 048
  2. NEURONTIN [Suspect]
     Indication: NEUROPATHY PERIPHERAL
     Dosage: 2400 MG (800 MG, 3 IN 1 D)
  3. ASPIRIN [Concomitant]
  4. GLUCOTROL XL [Suspect]
     Indication: DIABETES MELLITUS
     Dosage: (5 MG, 1 D)
  5. TEMAZEPAM [Suspect]
     Indication: SLEEP DISORDER
     Dosage: (30 MG, 1 D)
     Dates: start: 20080101
  6. DIOVAN HCT (CO-DIOVAN) [Concomitant]
  7. METFORMIN HCL [Suspect]
     Indication: DIABETES MELLITUS
     Dosage: 2000 MG (1000 MG, 2 IN 1 D)
  8. MELOXICAM [Concomitant]

REACTIONS (13)
  - HIP FRACTURE [None]
  - MEMORY IMPAIRMENT [None]
  - FOOT FRACTURE [None]
  - TREMOR [None]
  - DYSSTASIA [None]
  - FALL [None]
  - DIABETES MELLITUS [None]
  - INSOMNIA [None]
  - HORMONE LEVEL ABNORMAL [None]
  - NERVE INJURY [None]
  - ACCIDENT AT WORK [None]
  - BALANCE DISORDER [None]
  - DYSGRAPHIA [None]
